FAERS Safety Report 15604688 (Version 1)
Quarter: 2018Q4

REPORT INFORMATION
  Report Type: Spontaneous
  Country: US (occurrence: US)
  Receive Date: 20181110
  Receipt Date: 20181110
  Transmission Date: 20190205
  Serious: Yes (Disabling)
  Sender: FDA-Public Use
  Company Number: None

PATIENT
  Age: 68 Year
  Sex: Female
  Weight: 90 kg

DRUGS (9)
  1. ATORVASTATIN [Concomitant]
     Active Substance: ATORVASTATIN
  2. FLUOXETINE [Concomitant]
     Active Substance: FLUOXETINE HYDROCHLORIDE
  3. RANITIDINE. [Concomitant]
     Active Substance: RANITIDINE
  4. TOPIRAMATE. [Concomitant]
     Active Substance: TOPIRAMATE
  5. PANTOPRAZOLE [Concomitant]
     Active Substance: PANTOPRAZOLE
  6. ROPINEROLE [Concomitant]
     Active Substance: ROPINIROLE
  7. PROPRANOLOL [Concomitant]
     Active Substance: PROPRANOLOL HYDROCHLORIDE
  8. LEVOFLOXACIN 500 MG TABLET [Suspect]
     Active Substance: LEVOFLOXACIN
     Indication: SINUSITIS
     Dosage: ?          QUANTITY:1 TABLET(S);?
     Route: 048
     Dates: start: 20180817, end: 20180822
  9. BUPROPION XL [Concomitant]
     Active Substance: BUPROPION

REACTIONS (12)
  - Myalgia [None]
  - Fibula fracture [None]
  - Fatigue [None]
  - Fall [None]
  - Foot fracture [None]
  - Musculoskeletal pain [None]
  - Tibia fracture [None]
  - Loss of personal independence in daily activities [None]
  - Tendonitis [None]
  - Walking aid user [None]
  - Ligament sprain [None]
  - Ankle fracture [None]

NARRATIVE: CASE EVENT DATE: 20180822
